FAERS Safety Report 20435326 (Version 18)
Quarter: 2023Q2

REPORT INFORMATION
  Report Type: Spontaneous
  Country: US (occurrence: US)
  Receive Date: 20220206
  Receipt Date: 20230414
  Transmission Date: 20230721
  Serious: Yes (Hospitalization, Other)
  Sender: FDA-Public Use
  Company Number: US-BEH-2022141333

PATIENT
  Age: 12 Year
  Sex: Female
  Weight: 63.946 kg

DRUGS (26)
  1. HAEGARDA [Suspect]
     Active Substance: HUMAN C1-ESTERASE INHIBITOR
     Indication: Prophylaxis
     Dosage: 3500 INTERNATIONAL UNIT, BIW
     Route: 058
     Dates: start: 202109
  2. HAEGARDA [Suspect]
     Active Substance: HUMAN C1-ESTERASE INHIBITOR
     Indication: Hereditary angioedema
     Dosage: 4000 INTERNATIONAL UNIT, BIW
     Route: 058
     Dates: start: 202201, end: 2022
  3. HAEGARDA [Suspect]
     Active Substance: HUMAN C1-ESTERASE INHIBITOR
     Dosage: 4000 INTERNATIONAL UNIT, BIW
     Route: 058
     Dates: start: 20210228, end: 20210526
  4. HAEGARDA [Suspect]
     Active Substance: HUMAN C1-ESTERASE INHIBITOR
     Dosage: 4000 INTERNATIONAL UNIT, BIW
     Route: 058
     Dates: start: 20210915
  5. HAEGARDA [Suspect]
     Active Substance: HUMAN C1-ESTERASE INHIBITOR
     Dosage: 4000 INTERNATIONAL UNIT, BIW
     Route: 058
     Dates: start: 202201
  6. BERINERT [Suspect]
     Active Substance: HUMAN C1-ESTERASE INHIBITOR
     Indication: Hereditary angioedema with normal C1 esterase inhibitor
     Dosage: 1300 INTERNATIONAL UNIT, PRN
     Route: 042
     Dates: start: 202111
  7. BERINERT [Suspect]
     Active Substance: HUMAN C1-ESTERASE INHIBITOR
     Indication: Hereditary angioedema with normal C1 esterase inhibitor
     Dosage: 1300 INTERNATIONAL UNIT, PRN
     Route: 042
     Dates: start: 202111
  8. BERINERT [Suspect]
     Active Substance: HUMAN C1-ESTERASE INHIBITOR
     Indication: Hereditary angioedema
     Dosage: 1300 INTERNATIONAL UNIT, PRN
     Route: 042
     Dates: start: 20210409
  9. BERINERT [Suspect]
     Active Substance: HUMAN C1-ESTERASE INHIBITOR
     Indication: Hereditary angioedema
     Dosage: 1300 INTERNATIONAL UNIT, PRN
     Route: 042
     Dates: start: 20210409
  10. BERINERT [Suspect]
     Active Substance: HUMAN C1-ESTERASE INHIBITOR
     Dosage: 1300 INTERNATIONAL UNIT, PRN
     Route: 042
     Dates: start: 20211105
  11. BERINERT [Suspect]
     Active Substance: HUMAN C1-ESTERASE INHIBITOR
     Dosage: 1300 INTERNATIONAL UNIT, PRN
     Route: 042
     Dates: start: 20211105
  12. BERINERT [Suspect]
     Active Substance: HUMAN C1-ESTERASE INHIBITOR
     Dosage: 1300 INTERNATIONAL UNIT, PRN
     Route: 042
     Dates: start: 202104
  13. BERINERT [Suspect]
     Active Substance: HUMAN C1-ESTERASE INHIBITOR
     Dosage: 1300 INTERNATIONAL UNIT, PRN
     Route: 042
     Dates: start: 202104
  14. BERINERT [Suspect]
     Active Substance: HUMAN C1-ESTERASE INHIBITOR
     Dosage: 1300 INTERNATIONAL UNIT, PRN
     Route: 042
     Dates: start: 20210910
  15. BERINERT [Suspect]
     Active Substance: HUMAN C1-ESTERASE INHIBITOR
     Dosage: 1300 INTERNATIONAL UNIT, PRN
     Route: 042
     Dates: start: 20210910
  16. BERINERT [Suspect]
     Active Substance: HUMAN C1-ESTERASE INHIBITOR
     Dosage: 500 INTERNATIONAL UNIT, PRN
     Route: 042
     Dates: start: 20221017
  17. BERINERT [Suspect]
     Active Substance: HUMAN C1-ESTERASE INHIBITOR
     Dosage: 500 INTERNATIONAL UNIT, PRN
     Route: 042
     Dates: start: 20221017
  18. BERINERT [Suspect]
     Active Substance: HUMAN C1-ESTERASE INHIBITOR
     Dosage: 1300 INTERNATIONAL UNIT, PRN
     Route: 042
     Dates: start: 202110
  19. BERINERT [Suspect]
     Active Substance: HUMAN C1-ESTERASE INHIBITOR
     Dosage: 1300 INTERNATIONAL UNIT, PRN
     Route: 042
     Dates: start: 202110
  20. BERINERT [Suspect]
     Active Substance: HUMAN C1-ESTERASE INHIBITOR
     Dosage: 1300 INTERNATIONAL UNIT, PRN
     Route: 042
     Dates: start: 20210911
  21. BERINERT [Suspect]
     Active Substance: HUMAN C1-ESTERASE INHIBITOR
     Dosage: 1300 INTERNATIONAL UNIT, PRN
     Route: 042
     Dates: start: 20210911
  22. BERINERT [Suspect]
     Active Substance: HUMAN C1-ESTERASE INHIBITOR
     Dosage: 1300 INTERNATIONAL UNIT, PRN
     Route: 042
     Dates: start: 20210219
  23. BERINERT [Suspect]
     Active Substance: HUMAN C1-ESTERASE INHIBITOR
     Dosage: 1300 INTERNATIONAL UNIT, PRN
     Route: 042
     Dates: start: 20210219
  24. BERINERT [Suspect]
     Active Substance: HUMAN C1-ESTERASE INHIBITOR
     Dosage: 1 DOSAGE FORM, TOT
     Route: 042
     Dates: start: 20230404, end: 20230404
  25. BERINERT [Suspect]
     Active Substance: HUMAN C1-ESTERASE INHIBITOR
     Dosage: 1 DOSAGE FORM, TOT
     Route: 042
     Dates: start: 20230404, end: 20230404
  26. TAKHZYRO [Concomitant]
     Active Substance: LANADELUMAB-FLYO

REACTIONS (33)
  - Hereditary angioedema [Not Recovered/Not Resolved]
  - Drug ineffective for unapproved indication [Unknown]
  - Drug ineffective [Unknown]
  - Weight fluctuation [Unknown]
  - Hereditary angioedema [Recovered/Resolved]
  - Hereditary angioedema [Recovered/Resolved]
  - Hereditary angioedema [Not Recovered/Not Resolved]
  - Hereditary angioedema [Unknown]
  - Hereditary angioedema [Recovered/Resolved]
  - Hereditary angioedema [Recovered/Resolved]
  - Hereditary angioedema [Recovered/Resolved]
  - Hereditary angioedema [Recovered/Resolved]
  - No adverse event [Unknown]
  - Off label use [Unknown]
  - Hereditary angioedema [Unknown]
  - Hereditary angioedema [Recovered/Resolved]
  - Drug ineffective for unapproved indication [Recovered/Resolved]
  - Hereditary angioedema [Recovered/Resolved]
  - Hereditary angioedema [Unknown]
  - Hereditary angioedema [Unknown]
  - Hereditary angioedema [Recovered/Resolved]
  - Drug ineffective for unapproved indication [Unknown]
  - Hereditary angioedema [Unknown]
  - Hereditary angioedema [Unknown]
  - Hereditary angioedema [Recovered/Resolved]
  - Hereditary angioedema [Not Recovered/Not Resolved]
  - Hereditary angioedema [Unknown]
  - Hereditary angioedema [Unknown]
  - Hereditary angioedema [Recovered/Resolved]
  - Hereditary angioedema [Recovered/Resolved]
  - Hereditary angioedema [Not Recovered/Not Resolved]
  - Hereditary angioedema [Not Recovered/Not Resolved]
  - Drug ineffective for unapproved indication [Not Recovered/Not Resolved]

NARRATIVE: CASE EVENT DATE: 20220104
